FAERS Safety Report 8797004 (Version 1)
Quarter: 2012Q4

REPORT INFORMATION
  Report Type: 
  Country: US (occurrence: US)
  Receive Date: 20120919
  Receipt Date: 20120919
  Transmission Date: 20130627
  Serious: Yes (Hospitalization, Disabling, Other)
  Sender: FDA-Public Use
  Company Number: US-009507513-2010SP063657

PATIENT

DRUGS (2)
  1. NUVARING [Suspect]
     Indication: HORMONE REPLACEMENT THERAPY
     Dosage: UNK
     Dates: start: 20080909, end: 20081115
  2. PHENTERMINE [Concomitant]
     Indication: WEIGHT DECREASED
     Dosage: UNK
     Dates: start: 20081004, end: 20081005

REACTIONS (12)
  - Asthma [Not Recovered/Not Resolved]
  - Hypercoagulation [Unknown]
  - Eyelid infection [Unknown]
  - Pulmonary embolism [Unknown]
  - Pain in extremity [Unknown]
  - Infection [Unknown]
  - Mental disorder [Unknown]
  - Vulvovaginal candidiasis [Unknown]
  - Dermatomyositis [Recovered/Resolved]
  - Thyroid disorder [Unknown]
  - Chest pain [Unknown]
  - Off label use [Unknown]
